FAERS Safety Report 9338886 (Version 1)
Quarter: 2013Q2

REPORT INFORMATION
  Report Type: Spontaneous
  Country: US (occurrence: US)
  Receive Date: 20130610
  Receipt Date: 20130610
  Transmission Date: 20140414
  Serious: Yes (Other)
  Sender: FDA-Public Use
  Company Number: US-BAYER-2013-070214

PATIENT
  Age: 66 Year
  Sex: Male
  Weight: 74.38 kg

DRUGS (3)
  1. NEO-SYNEPHRINE COLD + SINUS EXTRA STRENGTH [Suspect]
     Indication: NASAL CONGESTION
     Dosage: 1 DOSE, QD
     Route: 045
     Dates: start: 1961
  2. PRILOSEC [Concomitant]
  3. METOPROLOL [Concomitant]

REACTIONS (2)
  - Drug dependence [None]
  - Incorrect drug administration duration [None]
